FAERS Safety Report 12133557 (Version 1)
Quarter: 2016Q1

REPORT INFORMATION
  Report Type: Spontaneous
  Country: FR (occurrence: FR)
  Receive Date: 20160301
  Receipt Date: 20160301
  Transmission Date: 20160526
  Serious: Yes (Death, Other)
  Sender: FDA-Public Use
  Company Number: FR-ELI_LILLY_AND_COMPANY-FR201602007876

PATIENT
  Age: 81 Year
  Sex: Female

DRUGS (6)
  1. RENITEC                            /00574902/ [Concomitant]
     Active Substance: ENALAPRIL MALEATE
     Dosage: 20 MG, UNKNOWN
     Route: 065
  2. GLUCOPHAGE [Concomitant]
     Active Substance: METFORMIN HYDROCHLORIDE
     Dosage: 850 MG, UNKNOWN
     Route: 065
  3. ZYPREXA [Suspect]
     Active Substance: OLANZAPINE
     Indication: ANTISOCIAL BEHAVIOUR
     Dosage: 1 DF, QD
     Route: 048
     Dates: start: 20150709, end: 20151223
  4. AVLOCARDYL                         /00030001/ [Concomitant]
     Active Substance: PROPRANOLOL HYDROCHLORIDE
     Dosage: 160 MG, UNKNOWN
     Route: 065
  5. LERCAN [Concomitant]
     Active Substance: LERCANIDIPINE
     Dosage: UNK, UNKNOWN
     Route: 065
  6. EBIXA [Concomitant]
     Active Substance: MEMANTINE HYDROCHLORIDE
     Indication: DEMENTIA ALZHEIMER^S TYPE
     Dosage: 20 MG, QD
     Route: 065
     Dates: start: 2012

REACTIONS (3)
  - Facial paralysis [Unknown]
  - Cerebrovascular accident [Fatal]
  - Glycosylated haemoglobin increased [Unknown]

NARRATIVE: CASE EVENT DATE: 20151223
